FAERS Safety Report 22599049 (Version 1)
Quarter: 2023Q2

REPORT INFORMATION
  Report Type: Spontaneous
  Country: CA (occurrence: None)
  Receive Date: 20230614
  Receipt Date: 20230614
  Transmission Date: 20230722
  Serious: Yes (Other)
  Sender: FDA-Public Use
  Company Number: CA-PFIZER INC-202300177926

PATIENT
  Age: 41 Year
  Sex: Female

DRUGS (12)
  1. METHOTREXATE [Suspect]
     Active Substance: METHOTREXATE
     Indication: Systemic lupus erythematosus
     Dosage: (2.5MG X 10 TABS)
  2. METHOTREXATE [Suspect]
     Active Substance: METHOTREXATE
     Indication: Sjogren^s syndrome
  3. COVID-19 VACCINE [Concomitant]
     Indication: COVID-19 immunisation
     Dosage: DOSE NUMBER UNKNOWN (BOOSTER), SINGLE
     Dates: start: 202304, end: 202304
  4. PLAQUENIL [Concomitant]
     Active Substance: HYDROXYCHLOROQUINE SULFATE
     Indication: Sjogren^s syndrome
  5. PLAQUENIL [Concomitant]
     Active Substance: HYDROXYCHLOROQUINE SULFATE
     Indication: Systemic lupus erythematosus
  6. PREVNAR [Concomitant]
     Active Substance: PNEUMOCOCCAL 7-VALENT CONJUGATE VACCINE (DIPHTHERIA CRM197 PROTEIN)
     Indication: Immunisation
     Dosage: SINGLE
     Dates: start: 202304, end: 202304
  7. CEQUA [Concomitant]
     Active Substance: CYCLOSPORINE
     Dosage: ONGOING
  8. DEXILANT [Concomitant]
     Active Substance: DEXLANSOPRAZOLE
     Dosage: ONGOING
  9. DICLOFENAC [Concomitant]
     Active Substance: DICLOFENAC
     Dosage: ONGOING
  10. FOLIC ACID [Concomitant]
     Active Substance: FOLIC ACID
     Dosage: ONGOING
  11. LOTEMAX [Concomitant]
     Active Substance: LOTEPREDNOL ETABONATE
     Dosage: ONGOING
  12. VENOFER [Concomitant]
     Active Substance: IRON SUCROSE
     Dosage: ONGOING

REACTIONS (19)
  - Systemic lupus erythematosus [Unknown]
  - Product use in unapproved indication [Unknown]
  - Dyspepsia [Recovering/Resolving]
  - Arthritis [Recovering/Resolving]
  - Condition aggravated [Not Recovered/Not Resolved]
  - Lymphopenia [Not Recovered/Not Resolved]
  - Rheumatoid factor positive [Not Recovered/Not Resolved]
  - Antiphospholipid antibodies positive [Not Recovered/Not Resolved]
  - Arthralgia [Not Recovered/Not Resolved]
  - Joint swelling [Not Recovered/Not Resolved]
  - Rash [Not Recovered/Not Resolved]
  - Musculoskeletal stiffness [Not Recovered/Not Resolved]
  - Dyspnoea [Not Recovered/Not Resolved]
  - Pain [Unknown]
  - C-reactive protein increased [Not Recovered/Not Resolved]
  - Antinuclear antibody positive [Unknown]
  - Antiphospholipid antibodies positive [Unknown]
  - Greater trochanteric pain syndrome [Unknown]
  - Undifferentiated connective tissue disease [Unknown]

NARRATIVE: CASE EVENT DATE: 20230101
